FAERS Safety Report 5680057-0 (Version None)
Quarter: 2008Q1

REPORT INFORMATION
  Report Type: 
  Country: None (occurrence: None)
  Receive Date: 20080325
  Receipt Date: 20080325
  Transmission Date: 20080703
  Serious: Yes (Other)
  Sender: FDA-Public Use
  Company Number: None

PATIENT
  Age: 8 Year
  Sex: Female
  Weight: 35.8342 kg

DRUGS (1)
  1. CEFDINIR [Suspect]
     Indication: PHARYNGITIS STREPTOCOCCAL
     Dosage: 1 TSP 2X/DAY PO
     Route: 048
     Dates: start: 20080319, end: 20080323

REACTIONS (3)
  - DIARRHOEA [None]
  - RASH MACULAR [None]
  - RASH PRURITIC [None]
